FAERS Safety Report 5333154-3 (Version None)
Quarter: 2007Q2

REPORT INFORMATION
  Report Type: 
  Country: None (occurrence: None)
  Receive Date: 20070524
  Receipt Date: 20070518
  Transmission Date: 20071010
  Serious: Yes (Other)
  Sender: FDA-Public Use
  Company Number: PHNU2007DE01868

PATIENT
  Sex: Female

DRUGS (3)
  1. VOLTAREN [Suspect]
     Indication: HIP ARTHROPLASTY
     Route: 048
  2. CEFUROXIME [Concomitant]
  3. CLINDAMYCIN [Concomitant]

REACTIONS (2)
  - OEDEMA PERIPHERAL [None]
  - PSEUDOMEMBRANOUS COLITIS [None]
